FAERS Safety Report 5833847-5 (Version None)
Quarter: 2008Q3

REPORT INFORMATION
  Report Type: 
  Country: None (occurrence: None)
  Receive Date: 20080805
  Receipt Date: 20080728
  Transmission Date: 20090109
  Serious: Yes (Hospitalization, Other)
  Sender: FDA-Public Use
  Company Number: FR-JNJFOC-20080706620

PATIENT
  Age: 94 Year
  Sex: Male

DRUGS (13)
  1. TAVANIC [Suspect]
     Indication: URINARY TRACT INFECTION
     Route: 048
     Dates: start: 20080401, end: 20080404
  2. XATRAL [Suspect]
     Indication: PROSTATIC ADENOMA
     Route: 048
     Dates: start: 20080325, end: 20080410
  3. CALCIPARINE [Suspect]
     Indication: PULMONARY EMBOLISM
     Route: 058
  4. AMOXICILLIN [Suspect]
     Indication: URINARY TRACT INFECTION
     Route: 048
     Dates: start: 20080404, end: 20080410
  5. DOLIPRANE [Concomitant]
     Route: 048
  6. DOLIPRANE [Concomitant]
     Route: 048
  7. DOLIPRANE [Concomitant]
     Indication: PAIN
     Route: 048
  8. CORTANCYL [Concomitant]
     Indication: DRUG USE FOR UNKNOWN INDICATION
     Route: 048
  9. TOPALGIC [Concomitant]
     Indication: PAIN
     Route: 048
     Dates: start: 20080321
  10. PANTOPRAZOLE SODIUM [Concomitant]
     Indication: PROPHYLAXIS
     Route: 048
  11. ATHYMIL [Concomitant]
     Route: 048
  12. MOVICOL [Concomitant]
     Route: 048
  13. WARFARIN SODIUM [Concomitant]
     Indication: EMBOLISM
     Route: 065
     Dates: start: 20080407

REACTIONS (1)
  - TOXIC SKIN ERUPTION [None]
